FAERS Safety Report 15151420 (Version 2)
Quarter: 2018Q4

REPORT INFORMATION
  Report Type: Report from Study
  Country: US (occurrence: US)
  Receive Date: 20180716
  Receipt Date: 20181107
  Transmission Date: 20190204
  Serious: Yes (Hospitalization)
  Sender: FDA-Public Use
  Company Number: US-ACTELION-A-NJ2017-155996

PATIENT
  Age: 69 Year
  Sex: Female
  Weight: 65.31 kg

DRUGS (5)
  1. VELETRI [Suspect]
     Active Substance: EPOPROSTENOL
     Indication: PULMONARY HYPERTENSION
     Dosage: 6 NG/KG, UNK
     Route: 042
  2. ADEMPAS [Concomitant]
     Active Substance: RIOCIGUAT
  3. AMLODIPINE [Concomitant]
     Active Substance: AMLODIPINE BESYLATE
  4. VELETRI [Suspect]
     Active Substance: EPOPROSTENOL
     Dosage: 12 NG/KG, PER MIN
     Route: 042
  5. XARELTO [Concomitant]
     Active Substance: RIVAROXABAN

REACTIONS (5)
  - Constipation [Unknown]
  - Malaise [Unknown]
  - Heart rate abnormal [Unknown]
  - Pain in jaw [Unknown]
  - Dyspnoea exertional [Not Recovered/Not Resolved]
